FAERS Safety Report 19362734 (Version 1)
Quarter: 2021Q2

REPORT INFORMATION
  Report Type: Spontaneous
  Country: CA (occurrence: CA)
  Receive Date: 20210601
  Receipt Date: 20210601
  Transmission Date: 20210717
  Serious: Yes (Hospitalization, Other)
  Sender: FDA-Public Use
  Company Number: CA-PFIZER INC-2021465136

PATIENT
  Age: 67 Year
  Sex: Male

DRUGS (4)
  1. CHLORDIAZEPOXIDE. [Concomitant]
     Active Substance: CHLORDIAZEPOXIDE
     Indication: AGITATION
     Dosage: 25MG P.O I.M Q.4.H P.R.N
     Route: 030
  2. DIAZEPAM. [Suspect]
     Active Substance: DIAZEPAM
     Indication: AGITATION
     Dosage: 10 MG (Q.4.H. P.R.N)
     Route: 030
  3. CHLORDIAZEPOXIDE. [Concomitant]
     Active Substance: CHLORDIAZEPOXIDE
     Dosage: 25 MG (ON ONE OCCASION)
     Route: 030
  4. DIAZEPAM. [Suspect]
     Active Substance: DIAZEPAM
     Dosage: RECEIVED DIAZEPAM 5?10MG I.M ON SIX OCCASIONS WITHIN A TIME FRAME OF 24?72 HOURS)
     Route: 030

REACTIONS (1)
  - Toxic encephalopathy [Recovering/Resolving]
